FAERS Safety Report 18548833 (Version 2)
Quarter: 2020Q4

REPORT INFORMATION
  Report Type: Spontaneous
  Country: JP (occurrence: JP)
  Receive Date: 20201125
  Receipt Date: 20201127
  Transmission Date: 20210114
  Serious: Yes (Hospitalization)
  Sender: FDA-Public Use
  Company Number: JP-JNJFOC-20201143062

PATIENT
  Age: 85 Year
  Sex: Male

DRUGS (1)
  1. DUROTEP [Suspect]
     Active Substance: FENTANYL
     Indication: PAIN
     Dosage: DOSE UNKNOWN
     Route: 062

REACTIONS (1)
  - Hospitalisation [Unknown]
